FAERS Safety Report 9913368 (Version 1)
Quarter: 2014Q1

REPORT INFORMATION
  Report Type: Spontaneous
  Country: US (occurrence: US)
  Receive Date: 20140220
  Receipt Date: 20140220
  Transmission Date: 20141002
  Serious: Yes (Hospitalization, Other)
  Sender: FDA-Public Use
  Company Number: US-AMGEN-USASP2014011599

PATIENT
  Age: 44 Year
  Sex: Female

DRUGS (1)
  1. ENBREL [Suspect]
     Indication: RHEUMATOID ARTHRITIS
     Dosage: 25 MG, 2 TIMES/WK
     Route: 065
     Dates: start: 20040130, end: 20140129

REACTIONS (17)
  - Knee arthroplasty [Unknown]
  - Weight decreased [Unknown]
  - Anaemia [Unknown]
  - Sarcoidosis [Unknown]
  - Skin papilloma [Unknown]
  - Local swelling [Unknown]
  - Erythema [Unknown]
  - Arthritis [Unknown]
  - Arthralgia [Unknown]
  - Nodule [Unknown]
  - Mobility decreased [Unknown]
  - Joint swelling [Unknown]
  - Pain in extremity [Unknown]
  - Impaired healing [Unknown]
  - Localised infection [Unknown]
  - Laryngitis [Not Recovered/Not Resolved]
  - Upper respiratory tract infection [Not Recovered/Not Resolved]
